FAERS Safety Report 16769552 (Version 3)
Quarter: 2020Q4

REPORT INFORMATION
  Report Type: Spontaneous
  Country: US (occurrence: US)
  Receive Date: 20190903
  Receipt Date: 20201120
  Transmission Date: 20210113
  Serious: Yes (Other)
  Sender: FDA-Public Use
  Company Number: US-AMGEN-USASP2019137841

PATIENT
  Age: 79 Year
  Sex: Female

DRUGS (3)
  1. BYSTOLIC [Concomitant]
     Active Substance: NEBIVOLOL HYDROCHLORIDE
     Indication: HYPERTENSION
  2. PROLIA [Suspect]
     Active Substance: DENOSUMAB
     Indication: OSTEOPOROSIS POSTMENOPAUSAL
     Dosage: UNK
     Route: 065
     Dates: start: 20190521
  3. LOSARTAN. [Concomitant]
     Active Substance: LOSARTAN
     Indication: BLOOD PRESSURE ABNORMAL
     Dosage: UNK

REACTIONS (10)
  - Tooth disorder [Unknown]
  - Hip arthroplasty [Unknown]
  - Chondropathy [Recovering/Resolving]
  - Dysphagia [Unknown]
  - Myalgia [Unknown]
  - Oropharyngeal discomfort [Unknown]
  - Tooth extraction [Unknown]
  - Back pain [Recovering/Resolving]
  - Somnolence [Unknown]
  - Pelvic pain [Unknown]

NARRATIVE: CASE EVENT DATE: 2019
